FAERS Safety Report 25582085 (Version 1)
Quarter: 2025Q3

REPORT INFORMATION
  Report Type: Spontaneous
  Country: EU (occurrence: EU)
  Receive Date: 20250719
  Receipt Date: 20250719
  Transmission Date: 20251021
  Serious: Yes (Other)
  Sender: AMGEN
  Company Number: EU-AMGEN-FRASP2025138643

PATIENT

DRUGS (4)
  1. TRASTUZUMAB [Suspect]
     Active Substance: TRASTUZUMAB
     Indication: Colorectal cancer metastatic
     Route: 065
  2. TRASTUZUMAB [Suspect]
     Active Substance: TRASTUZUMAB
     Indication: HER2 positive colorectal cancer
  3. TUCATINIB [Concomitant]
     Active Substance: TUCATINIB
     Indication: Colorectal cancer metastatic
     Route: 065
  4. TUCATINIB [Concomitant]
     Active Substance: TUCATINIB
     Indication: HER2 positive colorectal cancer

REACTIONS (5)
  - Colorectal cancer metastatic [Unknown]
  - HER2 positive colorectal cancer [Unknown]
  - Drug effective for unapproved indication [Unknown]
  - Drug ineffective for unapproved indication [Unknown]
  - Off label use [Unknown]
